FAERS Safety Report 8232559-0 (Version None)
Quarter: 2012Q1

REPORT INFORMATION
  Report Type: 
  Country: None (occurrence: None)
  Receive Date: 20120323
  Receipt Date: 20120319
  Transmission Date: 20120608
  Serious: Yes (Other)
  Sender: FDA-Public Use
  Company Number: GXKR2012DE001249

PATIENT
  Age: 13 Year
  Sex: Female

DRUGS (2)
  1. METHOTREXATE [Suspect]
     Dosage: 20 MG, QW
     Route: 058
     Dates: start: 20100101
  2. ENBREL [Suspect]
     Dosage: 25 MG EVERY 5 DAYS
     Route: 058
     Dates: start: 20110101

REACTIONS (1)
  - BLOOD THYROID STIMULATING HORMONE INCREASED [None]
